FAERS Safety Report 17896472 (Version 1)
Quarter: 2020Q2

REPORT INFORMATION
  Report Type: Spontaneous
  Country: US (occurrence: US)
  Receive Date: 20200615
  Receipt Date: 20200615
  Transmission Date: 20200714
  Serious: No
  Sender: FDA-Public Use
  Company Number: US-SUN PHARMACEUTICAL INDUSTRIES LTD-2020R1-240886

PATIENT
  Age: 50 Year
  Sex: Female

DRUGS (1)
  1. DALFAMPRIDINE. [Suspect]
     Active Substance: DALFAMPRIDINE
     Indication: WALKING DISABILITY
     Dosage: 10 MILLIGRAM, BID
     Route: 048
     Dates: start: 20200306

REACTIONS (1)
  - Drug ineffective [Not Recovered/Not Resolved]
